FAERS Safety Report 18678100 (Version 2)
Quarter: 2021Q1

REPORT INFORMATION
  Report Type: Spontaneous
  Country: IT (occurrence: IT)
  Receive Date: 20201229
  Receipt Date: 20210218
  Transmission Date: 20210419
  Serious: Yes (Hospitalization)
  Sender: FDA-Public Use
  Company Number: IT-ROCHE-2739104

PATIENT
  Age: 52 Year
  Sex: Female
  Weight: 66 kg

DRUGS (1)
  1. TRASTUZUMAB EMTANSINE [Suspect]
     Active Substance: ADO-TRASTUZUMAB EMTANSINE
     Indication: BREAST NEOPLASM
     Dosage: MOST RECENT DOSE ON 06/NOV/2020.
     Route: 042
     Dates: start: 20201106

REACTIONS (2)
  - Paraesthesia [Recovered/Resolved]
  - Erythema [Recovered/Resolved]

NARRATIVE: CASE EVENT DATE: 20201106
